FAERS Safety Report 4768942-5 (Version None)
Quarter: 2005Q3

REPORT INFORMATION
  Report Type: 
  Country: None (occurrence: None)
  Receive Date: 20050914
  Receipt Date: 20050830
  Transmission Date: 20060218
  Serious: Yes (Other)
  Sender: FDA-Public Use
  Company Number: L05-ITA-02931-10

PATIENT
  Sex: Female

DRUGS (1)
  1. PROPESS (DINOPROSTONE) [Suspect]
     Indication: LABOUR INDUCTION

REACTIONS (3)
  - CAESAREAN SECTION [None]
  - CERVIX DYSTOCIA [None]
  - COMPLICATIONS OF MATERNAL EXPOSURE TO THERAPEUTIC DRUGS [None]
